FAERS Safety Report 16536825 (Version 2)
Quarter: 2019Q3

REPORT INFORMATION
  Report Type: Spontaneous
  Country: US (occurrence: US)
  Receive Date: 20190706
  Receipt Date: 20190709
  Transmission Date: 20191004
  Serious: Yes (Other)
  Sender: FDA-Public Use
  Company Number: US-ALLERGAN-1927621US

PATIENT
  Sex: Female

DRUGS (1)
  1. BOTULINUM TOXIN TYPE A UNK [Suspect]
     Active Substance: BOTULINUM TOXIN TYPE A
     Indication: SKIN WRINKLING
     Dosage: 28 UNITS, SINGLE
     Route: 065

REACTIONS (5)
  - Head discomfort [Not Recovered/Not Resolved]
  - Pregnancy [Unknown]
  - Abortion spontaneous [Unknown]
  - Nervous system disorder [Not Recovered/Not Resolved]
  - Palpitations [Not Recovered/Not Resolved]
